FAERS Safety Report 6241666-3 (Version None)
Quarter: 2009Q2

REPORT INFORMATION
  Report Type: 
  Country: None (occurrence: None)
  Receive Date: 20090623
  Receipt Date: 20061121
  Transmission Date: 20091009
  Serious: Yes (Life-Threatening, Hospitalization)
  Sender: FDA-Public Use
  Company Number: US-ROCHE-472061

PATIENT
  Age: 44 Year
  Sex: Male

DRUGS (4)
  1. CLONAZEPAM [Suspect]
     Indication: DRUG USE FOR UNKNOWN INDICATION
     Dosage: FORM: PILLS. OVERDOSE.
     Route: 048
  2. CLONAZEPAM [Suspect]
     Route: 048
  3. DESIPRAMINE HCL [Suspect]
     Indication: DRUG USE FOR UNKNOWN INDICATION
     Dosage: FORM; PILLS.
     Route: 048
  4. TRAZODONE HCL [Concomitant]

REACTIONS (2)
  - BRUGADA SYNDROME [None]
  - SUICIDE ATTEMPT [None]
